FAERS Safety Report 4541771-3 (Version None)
Quarter: 2004Q4

REPORT INFORMATION
  Report Type: 
  Country: None (occurrence: None)
  Receive Date: 20041227
  Receipt Date: 20041213
  Transmission Date: 20050328
  Serious: Yes (Hospitalization)
  Sender: FDA-Public Use
  Company Number: 2004094537

PATIENT
  Age: 89 Year
  Sex: Female

DRUGS (4)
  1. ALPRAZOLAM [Suspect]
     Indication: ILL-DEFINED DISORDER
     Dosage: ORAL
     Route: 048
  2. OMEPRAZOLE (OMEPRZOLE) [Concomitant]
     Indication: ILL-DEFINED DISORDER
     Dosage: ORAL
     Route: 048
  3. VENLAFAXINE HCL [Suspect]
     Indication: ILL-DEFINED DISORDER
     Dosage: ORAL
     Route: 048
  4. OLANZAPINE [Suspect]
     Indication: ILL-DEFINED DISORDER
     Dosage: ORAL
     Route: 048

REACTIONS (9)
  - ANAEMIA [None]
  - CONFUSIONAL STATE [None]
  - HYPERCAPNIA [None]
  - LUNG DISORDER [None]
  - MALNUTRITION [None]
  - MENTAL DISORDER [None]
  - RESPIRATORY FAILURE [None]
  - SOMNOLENCE [None]
  - SUPERINFECTION LUNG [None]
